FAERS Safety Report 11444849 (Version 1)
Quarter: 2015Q3

REPORT INFORMATION
  Report Type: Spontaneous
  Country: BR (occurrence: BR)
  Receive Date: 20150902
  Receipt Date: 20150902
  Transmission Date: 20151125
  Serious: Yes (Hospitalization, Other)
  Sender: FDA-Public Use
  Company Number: BR-AMGEN-BRASP2015055040

PATIENT
  Age: 46 Year
  Sex: Female
  Weight: 78 kg

DRUGS (12)
  1. TEGRETOL CR [Concomitant]
     Active Substance: CARBAMAZEPINE
     Dosage: UNK
  2. METHOTREXATE SODIUM. [Interacting]
     Active Substance: METHOTREXATE SODIUM
     Indication: PRODUCT USED FOR UNKNOWN INDICATION
     Dosage: 5 TABLETS ON FRIDAY NIGHT
     Route: 048
  3. URBANIL [Concomitant]
     Active Substance: CLOBAZAM
     Dosage: 1 TABLET AT NIGHT
     Route: 048
  4. PANTOPRAZOLE [Concomitant]
     Active Substance: PANTOPRAZOLE SODIUM
     Indication: ABDOMINAL DISCOMFORT
     Dosage: (STRENGTH: 20MG)
  5. ENBREL [Suspect]
     Active Substance: ETANERCEPT
     Indication: RHEUMATOID ARTHRITIS
     Dosage: 50 MG, 1X/WEEK
     Route: 058
     Dates: start: 201504
  6. TOPIRAMATE. [Concomitant]
     Active Substance: TOPIRAMATE
     Dosage: 2 X 100 MG, DAILY
  7. SERTRALINE [Concomitant]
     Active Substance: SERTRALINE HYDROCHLORIDE
     Dosage: (STRENGTH: 100MG), IN THE MORNING
  8. PREDSIM [Concomitant]
     Active Substance: PREDNISOLONE
     Dosage: 5 MG, DAILY
  9. FOLIC ACID. [Concomitant]
     Active Substance: FOLIC ACID
     Dosage: 2 TABLETS ON THE WEEKEND
     Route: 048
  10. FOLIC ACID. [Concomitant]
     Active Substance: FOLIC ACID
     Dosage: 2 TABLETS ON THE WEEKEND
  11. TOPIRAMATE. [Concomitant]
     Active Substance: TOPIRAMATE
     Dosage: 2 X 100 MG, DAILY
     Route: 048
  12. METHOTREXATE SODIUM. [Interacting]
     Active Substance: METHOTREXATE SODIUM
     Dosage: 5 TABLETS ON FRIDAY NIGHT
     Route: 065

REACTIONS (8)
  - Drug interaction [Unknown]
  - Erythema [Not Recovered/Not Resolved]
  - Intentional product misuse [Unknown]
  - Hypersensitivity [Not Recovered/Not Resolved]
  - Dry skin [Not Recovered/Not Resolved]
  - Drug ineffective [Unknown]
  - Rash pustular [Not Recovered/Not Resolved]
  - Dengue fever [Unknown]

NARRATIVE: CASE EVENT DATE: 20150518
